FAERS Safety Report 7753394-3 (Version None)
Quarter: 2011Q3

REPORT INFORMATION
  Report Type: 
  Country: None (occurrence: None)
  Receive Date: 20110915
  Receipt Date: 20110902
  Transmission Date: 20111222
  Serious: Yes (Hospitalization, Other)
  Sender: FDA-Public Use
  Company Number: PHHY2011IT78799

PATIENT
  Age: 36 Year
  Sex: Male

DRUGS (5)
  1. ATENOLOL [Suspect]
     Dosage: 10 G, UNK
  2. LACIDIPINE [Suspect]
  3. SERTRALINE HYDROCHLORIDE [Suspect]
  4. NIFEDIPINE [Suspect]
  5. FLUOXETINE [Suspect]

REACTIONS (25)
  - NEUROLOGICAL SYMPTOM [None]
  - HAEMODYNAMIC INSTABILITY [None]
  - SHOCK [None]
  - CARDIAC ARREST [None]
  - SKIN LESION [None]
  - LEFT VENTRICULAR HYPERTROPHY [None]
  - VENTRICULAR HYPOKINESIA [None]
  - LEFT VENTRICULAR DYSFUNCTION [None]
  - RENAL IMPAIRMENT [None]
  - MULTI-ORGAN FAILURE [None]
  - SINUS BRADYCARDIA [None]
  - DEPRESSED LEVEL OF CONSCIOUSNESS [None]
  - HYPOXIA [None]
  - PULMONARY OEDEMA [None]
  - MYOGLOBINAEMIA [None]
  - RENAL FAILURE [None]
  - METABOLIC ACIDOSIS [None]
  - DYSPNOEA [None]
  - MYOGLOBINURIA [None]
  - INTENTIONAL OVERDOSE [None]
  - HYPOTENSION [None]
  - CENTRAL NERVOUS SYSTEM LESION [None]
  - CARDIAC FAILURE [None]
  - GENERAL PHYSICAL HEALTH DETERIORATION [None]
  - RHABDOMYOLYSIS [None]
